FAERS Safety Report 8346472-1 (Version None)
Quarter: 2012Q2

REPORT INFORMATION
  Report Type: 
  Country: None (occurrence: None)
  Receive Date: 20120507
  Receipt Date: 20120507
  Transmission Date: 20120825
  Serious: Yes (Hospitalization)
  Sender: FDA-Public Use
  Company Number: None

PATIENT
  Age: 58 Year
  Sex: Male
  Weight: 178 kg

DRUGS (8)
  1. ASPIRIN [Concomitant]
  2. RAMIPRIL [Concomitant]
  3. LANTUS [Concomitant]
  4. SOTALOL HCL [Concomitant]
  5. PRADAXA [Suspect]
     Indication: CORONARY ARTERY DISEASE
     Dosage: BID PO
     Route: 048
  6. SIMVASTATIN [Concomitant]
  7. NOVOLOG [Concomitant]
  8. FUROSEMIDE [Concomitant]

REACTIONS (2)
  - GASTROINTESTINAL HAEMORRHAGE [None]
  - INCORRECT DOSE ADMINISTERED [None]
